FAERS Safety Report 4560052-5 (Version None)
Quarter: 2005Q1

REPORT INFORMATION
  Report Type: 
  Country: None (occurrence: None)
  Receive Date: 20050125
  Receipt Date: 20050113
  Transmission Date: 20050727
  Serious: Yes (Death)
  Sender: FDA-Public Use
  Company Number: US-JNJFOC-20050103899

PATIENT
  Sex: Female

DRUGS (24)
  1. INFLIXIMAB [Suspect]
     Indication: RHEUMATOID ARTHRITIS
     Route: 042
     Dates: start: 20010514
  2. AMARYL [Concomitant]
  3. CALCIUM GLUCONATE [Concomitant]
  4. HYDROXYCHLOROQUINE SULFATE [Concomitant]
  5. HYDROXYZINE [Concomitant]
  6. LASIX [Concomitant]
  7. MULTI-VITAMIN [Concomitant]
  8. MULTI-VITAMIN [Concomitant]
  9. MULTI-VITAMIN [Concomitant]
  10. MULTI-VITAMIN [Concomitant]
  11. MULTI-VITAMIN [Concomitant]
  12. MULTI-VITAMIN [Concomitant]
  13. MULTI-VITAMIN [Concomitant]
  14. MULTI-VITAMIN [Concomitant]
  15. OXYCONTIN [Concomitant]
  16. PAXIL [Concomitant]
  17. PROPRANOLOL HYDROCHLORIDE [Concomitant]
  18. SPIRONOLACTONE [Concomitant]
  19. SULFASALAZINE [Concomitant]
  20. TOPROL-XL [Concomitant]
  21. TRAZODONE HCL [Concomitant]
  22. CALDERAL [Concomitant]
  23. TRILEPTAL [Concomitant]
  24. CYCLOBENZAPRINE [Concomitant]

REACTIONS (1)
  - DEATH [None]
